FAERS Safety Report 10216825 (Version 3)
Quarter: 2014Q3

REPORT INFORMATION
  Report Type: Spontaneous
  Country: GB (occurrence: GB)
  Receive Date: 20140604
  Receipt Date: 20140813
  Transmission Date: 20150326
  Serious: Yes (Death, Other)
  Sender: FDA-Public Use
  Company Number: GB-TEVA-484375ISR

PATIENT
  Sex: Female

DRUGS (4)
  1. MIRTAZAPINE. [Suspect]
     Active Substance: MIRTAZAPINE
     Indication: INSOMNIA
     Dosage: AT NIGHT
     Dates: start: 20120329
  2. MIRTAZAPINE. [Suspect]
     Active Substance: MIRTAZAPINE
     Dosage: AT NIGHT
  3. FLUOXETINE [Suspect]
     Active Substance: FLUOXETINE\FLUOXETINE HYDROCHLORIDE
     Indication: INSOMNIA
     Dates: start: 20120423
  4. ZOPICLONE [Concomitant]
     Active Substance: ZOPICLONE
     Indication: INSOMNIA

REACTIONS (17)
  - Completed suicide [Fatal]
  - Dizziness [Unknown]
  - Anxiety [Unknown]
  - Depression [Not Recovered/Not Resolved]
  - Initial insomnia [Unknown]
  - Emotional distress [Unknown]
  - Feeling abnormal [Unknown]
  - Personality change [Not Recovered/Not Resolved]
  - Agitation [Unknown]
  - Malaise [Unknown]
  - Drug withdrawal syndrome [Unknown]
  - Negative thoughts [Unknown]
  - Depression [Unknown]
  - Sedation [Unknown]
  - Dissociation [Unknown]
  - Panic reaction [Unknown]
  - Abnormal behaviour [Unknown]

NARRATIVE: CASE EVENT DATE: 201403
